FAERS Safety Report 4652666-9 (Version None)
Quarter: 2005Q2

REPORT INFORMATION
  Report Type: 
  Country: None (occurrence: None)
  Receive Date: 20050502
  Receipt Date: 20050419
  Transmission Date: 20051028
  Serious: Yes (Other)
  Sender: FDA-Public Use
  Company Number: 2005063859

PATIENT
  Sex: Female

DRUGS (6)
  1. PHENYTOIN SODIUM [Suspect]
     Indication: EPILEPSY
     Dosage: (100 MG)
  2. AMLODIPINE (AMLODIPINE) (AMLODIPINE) [Suspect]
     Indication: HYPERTENSION
  3. ATENOLOL [Suspect]
     Indication: HYPERTENSION
  4. SIMVASTATIN [Suspect]
     Indication: HYPERCHOLESTEROLAEMIA
  5. ASPIRIN [Concomitant]
  6. PROCHLORPERAZINE MALEATE [Concomitant]

REACTIONS (3)
  - CEREBROVASCULAR ACCIDENT [None]
  - DIZZINESS [None]
  - DRUG WITHDRAWAL SYNDROME [None]
